FAERS Safety Report 17412750 (Version 1)
Quarter: 2020Q1

REPORT INFORMATION
  Report Type: Spontaneous
  Country: US (occurrence: US)
  Receive Date: 20200212
  Receipt Date: 20200212
  Transmission Date: 20200409
  Serious: Yes (Death)
  Sender: FDA-Public Use
  Company Number: None

PATIENT
  Age: 61 Year
  Sex: Female

DRUGS (2)
  1. XGEVA [Suspect]
     Active Substance: DENOSUMAB
     Indication: BLADDER CANCER
     Route: 058
     Dates: start: 20191111, end: 20200208
  2. NEULASTA [Suspect]
     Active Substance: PEGFILGRASTIM
     Indication: BLADDER CANCER
     Dosage: ?          OTHER FREQUENCY:1X.28DAY.6CYC;?
     Route: 058
     Dates: start: 20190924, end: 20200208

REACTIONS (1)
  - Death [None]

NARRATIVE: CASE EVENT DATE: 20200208
